FAERS Safety Report 6894282-4 (Version None)
Quarter: 2010Q3

REPORT INFORMATION
  Report Type: 
  Country: None (occurrence: None)
  Receive Date: 20100802
  Receipt Date: 20100729
  Transmission Date: 20110219
  Serious: Yes (Hospitalization, Other)
  Sender: FDA-Public Use
  Company Number: US-PERRIGO-10US011080

PATIENT
  Sex: Female
  Weight: 58.957 kg

DRUGS (2)
  1. POLYETHYLENE GLYCOL 3350 17G 306 [Suspect]
     Indication: CONSTIPATION
     Dosage: 17 G, EVERY HOUR
     Route: 048
     Dates: start: 20100705, end: 20100707
  2. POLYETHYLENE GLYCOL 3350 17G 306 [Suspect]
     Dosage: 17 G, BID
     Dates: start: 20100709

REACTIONS (4)
  - DRUG INEFFECTIVE [None]
  - FAECALOMA [None]
  - OFF LABEL USE [None]
  - OVERDOSE [None]
